FAERS Safety Report 5627775-8 (Version None)
Quarter: 2008Q1

REPORT INFORMATION
  Report Type: 
  Country: None (occurrence: None)
  Receive Date: 20080215
  Receipt Date: 20080208
  Transmission Date: 20080703
  Serious: Yes (Hospitalization, Congenital Anomaly)
  Sender: FDA-Public Use
  Company Number: B0497970B

PATIENT
  Sex: Male
  Weight: 2.9 kg

DRUGS (3)
  1. LAMICTAL [Suspect]
     Indication: EPILEPSY
  2. ZANTAC [Suspect]
  3. ACETAMINOPHEN [Suspect]
     Indication: HEADACHE

REACTIONS (11)
  - AGITATION NEONATAL [None]
  - BODY TEMPERATURE INCREASED [None]
  - DRUG EXPOSURE DURING PREGNANCY [None]
  - DRUG WITHDRAWAL SYNDROME NEONATAL [None]
  - ENCEPHALOPATHY NEONATAL [None]
  - FEEDING DISORDER NEONATAL [None]
  - HYPERREFLEXIA [None]
  - HYPERTONIA NEONATAL [None]
  - INTESTINAL MALROTATION [None]
  - IRRITABILITY [None]
  - VOMITING NEONATAL [None]
